FAERS Safety Report 8776386 (Version 1)
Quarter: 2012Q4

REPORT INFORMATION
  Report Type: 
  Country: BR (occurrence: BR)
  Receive Date: 20120910
  Receipt Date: 20120910
  Transmission Date: 20130627
  Serious: Yes (Other)
  Sender: FDA-Public Use
  Company Number: BR-PFIZER INC-2012217360

PATIENT
  Age: 67 Year
  Sex: Male

DRUGS (3)
  1. XALATAN [Suspect]
     Indication: GLAUCOMA
     Dosage: 3 ug, 1x/day
     Dates: start: 2005, end: 2009
  2. XALACOM [Suspect]
     Indication: GLAUCOMA
     Dosage: UNK
     Route: 047
     Dates: start: 2009, end: 2010
  3. AZOPT [Concomitant]
     Indication: INTRAOCULAR PRESSURE INCREASED

REACTIONS (2)
  - Syncope [Recovered/Resolved]
  - Drug ineffective [Unknown]
